FAERS Safety Report 14593109 (Version 3)
Quarter: 2018Q2

REPORT INFORMATION
  Report Type: Spontaneous
  Country: US (occurrence: US)
  Receive Date: 20180302
  Receipt Date: 20180406
  Transmission Date: 20180711
  Serious: Yes (Other)
  Sender: FDA-Public Use
  Company Number: US-SAOL THERAPEUTICS-2018SAO00238

PATIENT
  Age: 50 Year
  Sex: Female
  Weight: 90.71 kg

DRUGS (19)
  1. FENTANYL. [Concomitant]
     Active Substance: FENTANYL
     Route: 037
  2. GABAPENTIN. [Concomitant]
     Active Substance: GABAPENTIN
  3. FLUOXETINE [Concomitant]
     Active Substance: FLUOXETINE HYDROCHLORIDE
     Dosage: 40 MG, 1X/DAY
     Route: 048
  4. DOCUSATE SODIUM. [Concomitant]
     Active Substance: DOCUSATE SODIUM
     Dosage: 100 MG, AS NEEDED
     Route: 048
  5. FENOFIBRIC ACID. [Concomitant]
     Active Substance: FENOFIBRIC ACID
     Dosage: 135 MG, 1X/DAY
     Route: 048
  6. OMEPRAZOLE. [Concomitant]
     Active Substance: OMEPRAZOLE
     Dosage: 20 MG, 1X/DAY
     Route: 048
  7. HYDROCODONE [Concomitant]
     Active Substance: HYDROCODONE
  8. KLONOPIN [Concomitant]
     Active Substance: CLONAZEPAM
     Dosage: 1 MG, 2X/DAY
     Route: 048
  9. BUSPIRONE [Concomitant]
     Active Substance: BUSPIRONE HYDROCHLORIDE
     Dosage: 10 MG, 1X/DAY
     Route: 048
  10. BACLOFEN. [Suspect]
     Active Substance: BACLOFEN
     Indication: POST LAMINECTOMY SYNDROME
  11. ASPIRIN. [Concomitant]
     Active Substance: ASPIRIN
     Dosage: 81 MG, 1X/DAY
     Route: 048
  12. SPIRONOLACTONE. [Concomitant]
     Active Substance: SPIRONOLACTONE
     Dosage: 1 TABLETS, 1X/DAY
     Route: 048
  13. BACLOFEN. [Suspect]
     Active Substance: BACLOFEN
     Indication: PAIN
     Dosage: 45.58 ?G, \DAY
     Route: 037
  14. DILAUDID [Concomitant]
     Active Substance: HYDROMORPHONE HYDROCHLORIDE
     Route: 037
  15. LEVOTHYROXINE. [Concomitant]
     Active Substance: LEVOTHYROXINE
     Dosage: 50 ?G, 1X/DAY
     Route: 048
  16. LISINOPRIL. [Concomitant]
     Active Substance: LISINOPRIL
     Dosage: 10 MG, 1X/DAY
     Route: 048
  17. ATORVASTATIN [Concomitant]
     Active Substance: ATORVASTATIN
     Dosage: 40 MG, 1X/DAY
     Route: 048
  18. PERCOCET [Concomitant]
     Active Substance: ACETAMINOPHEN\OXYCODONE HYDROCHLORIDE
     Dosage: 1 TABLETS, AS DIRECTED
     Route: 048
  19. TIZANIDINE. [Concomitant]
     Active Substance: TIZANIDINE
     Dosage: 4 MG, ONCE
     Route: 048

REACTIONS (24)
  - Drug withdrawal syndrome [Unknown]
  - Drug dose omission [Unknown]
  - Burning sensation [Unknown]
  - Pollakiuria [None]
  - Intervertebral disc displacement [Unknown]
  - Vomiting [None]
  - Anxiety [Unknown]
  - Road traffic accident [Unknown]
  - Suicidal behaviour [Unknown]
  - Dyspnoea [Unknown]
  - Spinal osteoarthritis [Unknown]
  - Oedema [Unknown]
  - Nausea [None]
  - Sleep disorder [Unknown]
  - Sacroiliitis [Unknown]
  - Pain [Unknown]
  - Back pain [Unknown]
  - Neck pain [Unknown]
  - Joint range of motion decreased [Unknown]
  - Device malfunction [Unknown]
  - Micturition urgency [None]
  - Gait disturbance [None]
  - Paraesthesia [Unknown]
  - Drug ineffective for unapproved indication [None]

NARRATIVE: CASE EVENT DATE: 20180108
